FAERS Safety Report 11122016 (Version 1)
Quarter: 2015Q2

REPORT INFORMATION
  Report Type: Spontaneous
  Country: US (occurrence: US)
  Receive Date: 20150519
  Receipt Date: 20150519
  Transmission Date: 20150821
  Serious: No
  Sender: FDA-Public Use
  Company Number: US-BAYER-2015-249162

PATIENT
  Age: 93 Year
  Sex: Female
  Weight: 61 kg

DRUGS (4)
  1. COZAAR [Concomitant]
     Active Substance: LOSARTAN POTASSIUM
  2. MIRALAX [Suspect]
     Active Substance: POLYETHYLENE GLYCOL 3350
     Indication: CONSTIPATION
     Dosage: 1 UNIT, ONCE
     Route: 048
     Dates: start: 201505, end: 201505
  3. ATIVAN [Concomitant]
     Active Substance: LORAZEPAM
  4. PEPCID [FAMOTIDINE] [Concomitant]

REACTIONS (1)
  - Muscle spasms [Recovered/Resolved]

NARRATIVE: CASE EVENT DATE: 201505
